FAERS Safety Report 25174325 (Version 1)
Quarter: 2025Q2

REPORT INFORMATION
  Report Type: Spontaneous
  Country: US (occurrence: None)
  Receive Date: 20250408
  Receipt Date: 20250408
  Transmission Date: 20250716
  Serious: No
  Sender: FDA-CTU
  Company Number: None

PATIENT
  Age: 16 Year
  Sex: Female

DRUGS (3)
  1. FLUOXETINE HCL [Suspect]
     Active Substance: FLUOXETINE
     Indication: Depression
     Dosage: 1 CAPSULE(S) DAILY ORAL
     Route: 048
     Dates: start: 20250305
  2. One a day women^s vitamins [Concomitant]
  3. PROBIOTICS NOS [Concomitant]
     Active Substance: PROBIOTICS NOS

REACTIONS (2)
  - Excessive eye blinking [None]
  - Hyperhidrosis [None]

NARRATIVE: CASE EVENT DATE: 20250312
